FAERS Safety Report 4806945-2 (Version None)
Quarter: 2005Q4

REPORT INFORMATION
  Report Type: 
  Country: None (occurrence: None)
  Receive Date: 20051019
  Receipt Date: 20051006
  Transmission Date: 20060501
  Serious: Yes (Hospitalization)
  Sender: FDA-Public Use
  Company Number: 2005139025

PATIENT
  Age: 34 Year
  Sex: Male

DRUGS (3)
  1. FLUCONAZOLE [Suspect]
     Indication: ILL-DEFINED DISORDER
     Dosage: (EVERY DAY), ORAL
     Route: 048
     Dates: start: 20050331, end: 20050409
  2. SULFADIAZINE [Suspect]
     Indication: ILL-DEFINED DISORDER
     Dosage: 4 GRAM (EVERY DAY), ORAL
     Route: 048
     Dates: start: 20050329, end: 20050411
  3. PYRIMETHAMINE TAB [Suspect]
     Indication: ILL-DEFINED DISORDER
     Dosage: 50 MG (EVERY DAY), ORAL
     Route: 048
     Dates: start: 20050329, end: 20050411

REACTIONS (8)
  - ALANINE AMINOTRANSFERASE INCREASED [None]
  - ASPARTATE AMINOTRANSFERASE INCREASED [None]
  - CYTOLYTIC HEPATITIS [None]
  - CYTOMEGALOVIRUS TEST POSITIVE [None]
  - HYPERSENSITIVITY [None]
  - LYMPHADENOPATHY [None]
  - PYREXIA [None]
  - THROMBOCYTOPENIA [None]
